FAERS Safety Report 18684448 (Version 7)
Quarter: 2023Q4

REPORT INFORMATION
  Report Type: Spontaneous
  Country: US (occurrence: US)
  Receive Date: 20201230
  Receipt Date: 20231012
  Transmission Date: 20240110
  Serious: Yes (Hospitalization, Other)
  Sender: FDA-Public Use
  Company Number: US-PFIZER INC-2020516462

PATIENT
  Age: 72 Year
  Sex: Female
  Weight: 86.18 kg

DRUGS (2)
  1. XELJANZ XR [Suspect]
     Active Substance: TOFACITINIB CITRATE
     Indication: Rheumatoid arthritis
     Dosage: 11 MG, DAILY
     Route: 048
  2. TYLENOL [Concomitant]
     Active Substance: ACETAMINOPHEN
     Indication: Analgesic therapy
     Dosage: 500 MG

REACTIONS (12)
  - Spinal operation [Unknown]
  - Melaena [Unknown]
  - Anaemia [Unknown]
  - Product dose omission issue [Unknown]
  - Osteoarthritis [Unknown]
  - Hypoacusis [Not Recovered/Not Resolved]
  - Body height decreased [Unknown]
  - Weight increased [Unknown]
  - Tremor [Unknown]
  - Sensitivity to weather change [Unknown]
  - Myofascial pain syndrome [Unknown]
  - Pain [Unknown]
